FAERS Safety Report 4528387-X (Version None)
Quarter: 2004Q4

REPORT INFORMATION
  Report Type: 
  Country: None (occurrence: None)
  Receive Date: 20041216
  Receipt Date: 20041206
  Transmission Date: 20050328
  Serious: Yes (Hospitalization, Other)
  Sender: FDA-Public Use
  Company Number: US-JNJFOC-20041006355

PATIENT
  Sex: Female
  Weight: 68.49 kg

DRUGS (4)
  1. REMICADE [Suspect]
     Indication: CROHN'S DISEASE
     Route: 042
  2. 6-MP [Concomitant]
     Indication: CROHN'S DISEASE
  3. RANITIDINE [Concomitant]
     Indication: CROHN'S DISEASE
  4. ENTOCORT [Concomitant]
     Indication: CROHN'S DISEASE

REACTIONS (4)
  - CHOLELITHIASIS [None]
  - GASTRIC PERFORATION [None]
  - MASS [None]
  - NON-HODGKIN'S LYMPHOMA [None]
